FAERS Safety Report 6147287-5 (Version None)
Quarter: 2009Q2

REPORT INFORMATION
  Report Type: 
  Country: None (occurrence: None)
  Receive Date: 20090408
  Receipt Date: 20090330
  Transmission Date: 20091009
  Serious: Yes (Hospitalization)
  Sender: FDA-Public Use
  Company Number: ES-ELI_LILLY_AND_COMPANY-ES200904000009

PATIENT
  Age: 87 Year
  Sex: Male

DRUGS (8)
  1. FORTEO [Suspect]
     Indication: OSTEOPOROSIS
     Dosage: 20 UG, DAILY (1/D)
     Route: 058
     Dates: start: 20080101, end: 20090325
  2. ORFIDAL [Concomitant]
  3. OMEPRAZOL [Concomitant]
  4. METFORMIN HCL [Concomitant]
  5. CIPRALEX [Concomitant]
  6. DURAGESIC-100 [Concomitant]
  7. SIMVASTATINA [Concomitant]
  8. ADIRO [Concomitant]

REACTIONS (2)
  - FALL [None]
  - HIP FRACTURE [None]
